FAERS Safety Report 16794028 (Version 1)
Quarter: 2019Q3

REPORT INFORMATION
  Report Type: Other
  Country: US (occurrence: US)
  Receive Date: 20190911
  Receipt Date: 20190911
  Transmission Date: 20191005
  Serious: No
  Sender: FDA-Public Use
  Company Number: US-GLENMARK PHARMACEUTICALS-2019GMK041890

PATIENT

DRUGS (1)
  1. ROPINIROLE HYDROCHLORIDE. [Suspect]
     Active Substance: ROPINIROLE HYDROCHLORIDE
     Indication: RESTLESS LEGS SYNDROME
     Dosage: 4 MG, HS (4MG ONCE NIGHTLY)
     Route: 065
     Dates: end: 201905

REACTIONS (6)
  - Drug ineffective [Unknown]
  - Intentional product use issue [Unknown]
  - Product formulation issue [Unknown]
  - Product measured potency issue [Unknown]
  - Lacrimation increased [Not Recovered/Not Resolved]
  - Nasal congestion [Not Recovered/Not Resolved]
